FAERS Safety Report 8817809 (Version 5)
Quarter: 2012Q4

REPORT INFORMATION
  Report Type: 
  Country: US (occurrence: US)
  Receive Date: 20121001
  Receipt Date: 20121217
  Transmission Date: 20130627
  Serious: Yes (Hospitalization, Other)
  Sender: FDA-Public Use
  Company Number: US-009507513-1209USA010776

PATIENT
  Sex: Female

DRUGS (6)
  1. PEG-INTRON [Suspect]
     Indication: HEPATITIS C
     Dosage: redipen
     Dates: start: 20120902, end: 20120921
  2. PEG-INTRON [Suspect]
     Dosage: Redipen
     Dates: start: 20120923
  3. PEG-INTRON [Suspect]
     Dosage: UNK
  4. RIBAVIRIN [Suspect]
     Dosage: UNK
     Dates: start: 20120902, end: 20120921
  5. RIBAVIRIN [Suspect]
     Dosage: UNK
     Dates: start: 20120923
  6. TELAPREVIR [Suspect]
     Indication: HEPATITIS C
     Dosage: UNK
     Dates: start: 20120923

REACTIONS (16)
  - Sepsis [Unknown]
  - Tremor [Unknown]
  - Chills [Unknown]
  - Pruritus [Unknown]
  - Muscle spasms [Unknown]
  - Amnesia [Unknown]
  - Pain [Not Recovered/Not Resolved]
  - Muscle spasms [Unknown]
  - Pruritus [Unknown]
  - Illusion [Unknown]
  - Pruritus [Unknown]
  - Apathy [Unknown]
  - Dysgeusia [Unknown]
  - Pruritus [Unknown]
  - Laceration [Unknown]
  - Dehydration [Unknown]
